FAERS Safety Report 10423476 (Version 1)
Quarter: 2014Q3

REPORT INFORMATION
  Report Type: Spontaneous
  Country: US (occurrence: None)
  Receive Date: 20140722
  Receipt Date: 20140722
  Transmission Date: 20150326
  Serious: Yes (Other)
  Sender: FDA-Public Use
  Company Number: AEGR000443

PATIENT
  Age: 66 Year
  Sex: Female
  Weight: 90.2 kg

DRUGS (11)
  1. CELEXA [Concomitant]
     Active Substance: CITALOPRAM HYDROBROMIDE
  2. VITAMIN E [Concomitant]
     Active Substance: .ALPHA.-TOCOPHEROL
  3. OMEGA 3 FISH OIL (FISH OIL) [Concomitant]
     Active Substance: OMEGA-3 FATTY ACIDS
  4. JUXTAPID [Suspect]
     Active Substance: LOMITAPIDE MESYLATE
     Indication: TYPE IIA HYPERLIPIDAEMIA
     Route: 048
     Dates: start: 201404, end: 201404
  5. FLONASE [Concomitant]
     Active Substance: FLUTICASONE PROPIONATE
  6. SYMBICORT [Concomitant]
     Active Substance: BUDESONIDE\FORMOTEROL FUMARATE DIHYDRATE
  7. PRILOSEC (OMEPRAZOLE) [Concomitant]
     Active Substance: OMEPRAZOLE MAGNESIUM
  8. LIVALO (PITAVASTATIN CALCIUM) [Concomitant]
  9. BENADRYL ALLERGY (DIPHENHYDRAMINE HYDROCHLORIDE) [Concomitant]
  10. VENTOLIN (SALBUTAMOL SULFATE) [Concomitant]
  11. ASPIRIN. [Concomitant]
     Active Substance: ASPIRIN

REACTIONS (3)
  - Diarrhoea [None]
  - Nasopharyngitis [None]
  - Nausea [None]

NARRATIVE: CASE EVENT DATE: 201404
